FAERS Safety Report 23483099 (Version 1)
Quarter: 2024Q1

REPORT INFORMATION
  Report Type: Spontaneous
  Country: US (occurrence: None)
  Receive Date: 20240202
  Receipt Date: 20240202
  Transmission Date: 20240410
  Serious: Yes (Other)
  Sender: FDA-Public Use
  Company Number: None

PATIENT
  Age: 35 Year
  Sex: Female

DRUGS (1)
  1. MODAFINIL [Suspect]
     Active Substance: MODAFINIL
     Dosage: FREQUENCY : TWICE A DAY;?

REACTIONS (6)
  - Vomiting [None]
  - Dizziness [None]
  - Anxiety [None]
  - Chest pain [None]
  - Nausea [None]
  - Haematemesis [None]

NARRATIVE: CASE EVENT DATE: 20240201
